FAERS Safety Report 22117827 (Version 1)
Quarter: 2023Q1

REPORT INFORMATION
  Report Type: Spontaneous
  Country: US (occurrence: US)
  Receive Date: 20230321
  Receipt Date: 20230321
  Transmission Date: 20230417
  Serious: Yes (Other)
  Sender: FDA-Public Use
  Company Number: US-Amarin Pharma  Inc-2023AMR000090

PATIENT
  Sex: Female

DRUGS (4)
  1. VASCEPA [Suspect]
     Active Substance: ICOSAPENT ETHYL
     Indication: Blood cholesterol
     Route: 048
  2. POTASSIUM [Concomitant]
     Active Substance: POTASSIUM
     Indication: Product used for unknown indication
  3. LASIX [Concomitant]
     Active Substance: FUROSEMIDE
     Indication: Product used for unknown indication
  4. LIPITOR [Concomitant]
     Active Substance: ATORVASTATIN CALCIUM
     Indication: Product used for unknown indication

REACTIONS (9)
  - Pericardial effusion [Not Recovered/Not Resolved]
  - Neoplasm malignant [Unknown]
  - Lipoedema [Unknown]
  - Atrial fibrillation [Unknown]
  - Gout [Unknown]
  - Dyspnoea [Not Recovered/Not Resolved]
  - Post procedural complication [Unknown]
  - Product label issue [Unknown]
  - Product packaging quantity issue [Unknown]
